FAERS Safety Report 6979690-5 (Version None)
Quarter: 2010Q3

REPORT INFORMATION
  Report Type: 
  Country: None (occurrence: None)
  Receive Date: 20100908
  Receipt Date: 20100824
  Transmission Date: 20110219
  Serious: Yes (Other)
  Sender: FDA-Public Use
  Company Number: 010805

PATIENT
  Age: 57 Year
  Sex: Male

DRUGS (5)
  1. BUSULFEX [Suspect]
     Indication: STEM CELL TRANSPLANT
     Dosage: 8 MG/KG
  2. FLUDARABINE PHOSPHATE [Concomitant]
  3. ATG (ANTILYMPHOC YTE IMMUNOGLOBULIN (HORSE)) [Concomitant]
  4. CYCLOPHOSPHAMIDE [Concomitant]
  5. MYCOPHENOLATE MOFETIL [Concomitant]

REACTIONS (4)
  - CHRONIC GRAFT VERSUS HOST DISEASE [None]
  - LEUKAEMIA RECURRENT [None]
  - SKIN NODULE [None]
  - TREATMENT NONCOMPLIANCE [None]
